FAERS Safety Report 9721967 (Version 1)
Quarter: 2013Q4

REPORT INFORMATION
  Report Type: Spontaneous
  Country: US (occurrence: US)
  Receive Date: 20131202
  Receipt Date: 20131202
  Transmission Date: 20140711
  Serious: Yes (Death)
  Sender: FDA-Public Use
  Company Number: US-INDICUS PHARMA-000191

PATIENT
  Age: 60 Year
  Sex: Female

DRUGS (7)
  1. AMLODIPINE [Suspect]
     Route: 048
  2. HYDROCODONE [Suspect]
     Route: 048
  3. POTASSIUM [Suspect]
     Route: 048
  4. METOPROLOL [Suspect]
     Route: 048
  5. SALICYLATES NOS [Suspect]
     Route: 048
  6. METFORMIN HYDROCHLORIDE [Suspect]
     Route: 048
  7. ACETAMINOPHEN [Suspect]
     Route: 048

REACTIONS (2)
  - Exposure via ingestion [Fatal]
  - Completed suicide [Fatal]
